FAERS Safety Report 9918862 (Version 1)
Quarter: 2014Q1

REPORT INFORMATION
  Report Type: Spontaneous
  Country: US (occurrence: US)
  Receive Date: 20140224
  Receipt Date: 20140224
  Transmission Date: 20141002
  Serious: Yes (Other)
  Sender: FDA-Public Use
  Company Number: US-BAYER-2014-027576

PATIENT
  Age: 59 Year
  Sex: Male

DRUGS (3)
  1. STIVARGA [Suspect]
     Indication: COLON CANCER STAGE IV
     Dosage: 160 MG, QD, 2 TABS(80MG) BY MOUTH IN THE MORNING AND NIGHT
     Route: 048
     Dates: start: 20140208
  2. STIVARGA [Suspect]
     Indication: METASTASES TO LIVER
  3. STIVARGA [Suspect]
     Indication: METASTASES TO LUNG

REACTIONS (1)
  - Dyspnoea [Not Recovered/Not Resolved]
